FAERS Safety Report 7212135-9 (Version None)
Quarter: 2011Q1

REPORT INFORMATION
  Report Type: 
  Country: None (occurrence: None)
  Receive Date: 20110106
  Receipt Date: 20101227
  Transmission Date: 20110831
  Serious: No
  Sender: FDA-Public Use
  Company Number: US-BAYER-2010-009331

PATIENT
  Sex: Female

DRUGS (3)
  1. AMOXICILLIN [Concomitant]
     Dosage: ON AND OFF
     Dates: start: 20101201, end: 20101201
  2. AMOXICILLIN [Concomitant]
     Indication: TOOTH INFECTION
     Dosage: UNK
     Dates: start: 20101101, end: 20101101
  3. MIRENA [Suspect]
     Indication: PRODUCT USED FOR UNKNOWN INDICATION

REACTIONS (3)
  - ABDOMINAL PAIN UPPER [None]
  - NAUSEA [None]
  - PREGNANCY [None]
